FAERS Safety Report 23921467 (Version 1)
Quarter: 2024Q2

REPORT INFORMATION
  Report Type: Spontaneous
  Country: US (occurrence: US)
  Receive Date: 20240530
  Receipt Date: 20240530
  Transmission Date: 20240716
  Serious: No
  Sender: FDA-Public Use
  Company Number: US-Calliditas-2024CAL00830

PATIENT
  Age: 52 Year
  Sex: Male

DRUGS (2)
  1. TARPEYO [Suspect]
     Active Substance: BUDESONIDE
     Indication: IgA nephropathy
     Route: 048
     Dates: start: 20230915
  2. PREDNISONE [Suspect]
     Active Substance: PREDNISONE

REACTIONS (2)
  - Fatigue [Recovering/Resolving]
  - Weight increased [Unknown]
